FAERS Safety Report 4294966-0 (Version None)
Quarter: 2004Q1

REPORT INFORMATION
  Report Type: 
  Country: None (occurrence: None)
  Receive Date: 20040216
  Receipt Date: 20030314
  Transmission Date: 20041129
  Serious: No
  Sender: FDA-Public Use
  Company Number: US-GLAXOSMITHKLINE-A0400765A

PATIENT

DRUGS (2)
  1. LAMICTAL [Suspect]
     Route: 048
  2. UNKNOWN MEDICATION [Concomitant]

REACTIONS (1)
  - APHTHOUS STOMATITIS [None]
